FAERS Safety Report 10261021 (Version 1)
Quarter: 2014Q2

REPORT INFORMATION
  Report Type: Spontaneous
  Country: US (occurrence: US)
  Receive Date: 20140626
  Receipt Date: 20140626
  Transmission Date: 20141212
  Serious: No
  Sender: FDA-Public Use
  Company Number: US-PFIZER INC-2014171672

PATIENT
  Age: 78 Year
  Sex: Male

DRUGS (1)
  1. TIKOSYN [Suspect]
     Dosage: 1000 UG, 1X/DAY (500 MCG, 2 PO QD)
     Route: 048

REACTIONS (1)
  - Off label use [Unknown]
